FAERS Safety Report 7357884-7 (Version None)
Quarter: 2011Q1

REPORT INFORMATION
  Report Type: 
  Country: None (occurrence: None)
  Receive Date: 20110317
  Receipt Date: 20110314
  Transmission Date: 20110831
  Serious: Yes (Death, Life-Threatening, Other)
  Sender: FDA-Public Use
  Company Number: JP-SANOFI-AVENTIS-2010SA075117

PATIENT
  Age: 50 Year
  Sex: Female

DRUGS (8)
  1. AVASTIN [Suspect]
     Route: 042
     Dates: start: 20101119, end: 20101119
  2. CALCIUM LEVOFOLINATE [Suspect]
     Route: 042
     Dates: start: 20101119, end: 20101119
  3. AVASTIN [Suspect]
     Indication: COLON CANCER METASTATIC
     Route: 042
     Dates: start: 20100430, end: 20100430
  4. 5-FU [Suspect]
     Route: 042
     Dates: start: 20101101, end: 20101101
  5. ELPLAT [Suspect]
     Indication: COLON CANCER METASTATIC
     Route: 042
     Dates: start: 20100430, end: 20100430
  6. 5-FU [Suspect]
     Indication: COLON CANCER METASTATIC
     Route: 042
     Dates: start: 20100430, end: 20100430
  7. ELPLAT [Suspect]
     Route: 042
     Dates: start: 20101119, end: 20101119
  8. CALCIUM LEVOFOLINATE [Suspect]
     Indication: COLON CANCER METASTATIC
     Route: 042
     Dates: start: 20100430, end: 20100430

REACTIONS (10)
  - SUBDURAL HAEMATOMA [None]
  - CEREBRAL HAEMORRHAGE [None]
  - BLOOD PRESSURE DECREASED [None]
  - PLATELET COUNT DECREASED [None]
  - HYPERTENSION [None]
  - EPISTAXIS [None]
  - DEPRESSED LEVEL OF CONSCIOUSNESS [None]
  - HYPERAMMONAEMIA [None]
  - HEPATIC FUNCTION ABNORMAL [None]
  - NEUTROPHIL COUNT DECREASED [None]
